FAERS Safety Report 25959430 (Version 1)
Quarter: 2025Q4

REPORT INFORMATION
  Report Type: Spontaneous
  Country: EU (occurrence: EU)
  Receive Date: 20251026
  Receipt Date: 20251026
  Transmission Date: 20260118
  Serious: Yes (Other)
  Sender: SANDOZ
  Company Number: EU-SANDOZ-SDZ2025HU079141

PATIENT
  Age: 73 Year
  Sex: Female

DRUGS (8)
  1. DEXAMETHASONE\TOBRAMYCIN [Suspect]
     Active Substance: DEXAMETHASONE\TOBRAMYCIN
     Indication: Choroidal effusion
     Dosage: UNK
     Route: 065
  2. DEXAMETHASONE\TOBRAMYCIN [Suspect]
     Active Substance: DEXAMETHASONE\TOBRAMYCIN
     Indication: Postoperative care
     Dosage: UNK (DECREASING DOSES) (ROUTE OF ADMINISTRATION:LOCAL)
     Route: 065
  3. ACETAZOLAMIDE [Concomitant]
     Active Substance: ACETAZOLAMIDE
     Indication: Choroidal effusion
     Dosage: UNK
     Route: 048
  4. ATROPINE [Concomitant]
     Active Substance: ATROPINE
     Indication: Choroidal effusion
     Dosage: 1 PERCENT
     Route: 065
  5. ATROPINE [Concomitant]
     Active Substance: ATROPINE
     Indication: Postoperative care
     Dosage: 1 PERCENT (DECREASING DOSES) (ROUTE OF ADMINISTRATION: LOCAL)
     Route: 065
  6. METHYLPREDNISOLONE [Concomitant]
     Active Substance: METHYLPREDNISOLONE
     Indication: Choroidal effusion
     Dosage: 500 MG, TID
     Route: 042
  7. METHYLPREDNISOLONE [Concomitant]
     Active Substance: METHYLPREDNISOLONE
     Indication: Product used for unknown indication
     Dosage: 64 MG
     Route: 048
  8. NEOSYNEPHRINE [Concomitant]
     Active Substance: PHENYLEPHRINE HYDROCHLORIDE
     Indication: Choroidal effusion
     Dosage: UNK
     Route: 065

REACTIONS (4)
  - Cystoid macular oedema [Recovered/Resolved]
  - Choroidal effusion [Unknown]
  - Retinopathy [Unknown]
  - Off label use [Unknown]
